FAERS Safety Report 8160515-X (Version None)
Quarter: 2012Q1

REPORT INFORMATION
  Report Type: 
  Country: None (occurrence: None)
  Receive Date: 20120223
  Receipt Date: 20120215
  Transmission Date: 20120608
  Serious: No
  Sender: FDA-Public Use
  Company Number: US-BAYER-2012-016506

PATIENT
  Age: 61 Year
  Sex: Male
  Weight: 68 kg

DRUGS (7)
  1. MULTI-VITAMIN [Concomitant]
  2. ACETYLSALICYLIC ACID SRT [Concomitant]
     Dosage: 81 MG, UNK
     Route: 048
  3. OXYBUTYNIN [Concomitant]
  4. FINASTERIDE [Concomitant]
  5. ACETAMINOPHEN [Concomitant]
  6. ALEVE (CAPLET) [Suspect]
     Indication: MIGRAINE PROPHYLAXIS
     Dosage: 3 TABLETS QD
     Route: 048
     Dates: start: 20070101
  7. TAMSULOSIN HCL [Concomitant]

REACTIONS (1)
  - NO ADVERSE EVENT [None]
